FAERS Safety Report 8643148 (Version 3)
Quarter: 2012Q4

REPORT INFORMATION
  Report Type: 
  Country: FR (occurrence: FR)
  Receive Date: 20120629
  Receipt Date: 20121107
  Transmission Date: 20130627
  Serious: Yes (Life-Threatening, Hospitalization)
  Sender: FDA-Public Use
  Company Number: FR-BRISTOL-MYERS SQUIBB COMPANY-16698979

PATIENT
  Age: 67 Year
  Sex: Female
  Weight: 66 kg

DRUGS (10)
  1. AXEPIM INJ 2 GM [Suspect]
     Indication: OSTEOMYELITIS
     Route: 042
     Dates: start: 20120602, end: 20120606
  2. PIPERACILLIN [Suspect]
     Indication: OSTEOMYELITIS
     Dosage: Intead of 6gm/day ,2mg/day introduced
     Route: 042
     Dates: start: 20120604, end: 20120607
  3. GENTAMICIN [Concomitant]
     Dates: start: 20120603, end: 20120606
  4. VANCOMYCIN [Concomitant]
     Dates: start: 20120603
  5. ACUPAN [Concomitant]
  6. MOPRAL [Concomitant]
  7. OXYNORM [Concomitant]
  8. PARIET [Concomitant]
  9. LEVOTHYROX [Concomitant]
  10. SPECIAFOLDINE [Concomitant]

REACTIONS (13)
  - Encephalopathy [Recovered/Resolved]
  - Overdose [Not Recovered/Not Resolved]
  - Pancytopenia [Not Recovered/Not Resolved]
  - Rectal haemorrhage [Not Recovered/Not Resolved]
  - Hypotension [Not Recovered/Not Resolved]
  - Clonus [None]
  - Blood pH increased [None]
  - PO2 decreased [None]
  - PCO2 decreased [None]
  - Base excess increased [None]
  - Gastrointestinal angiodysplasia [None]
  - Toxic encephalopathy [None]
  - Coma [None]
